FAERS Safety Report 4867988-6 (Version None)
Quarter: 2005Q4

REPORT INFORMATION
  Report Type: 
  Country: None (occurrence: None)
  Receive Date: 20051229
  Receipt Date: 20051220
  Transmission Date: 20060501
  Serious: Yes (Other)
  Sender: FDA-Public Use
  Company Number: SE-JNJFOC-20050905930

PATIENT
  Age: 43 Year
  Sex: Male

DRUGS (4)
  1. REMICADE [Suspect]
     Indication: CROHN'S DISEASE
     Dosage: 5MG/KG
     Route: 042
  2. PURINETHOL [Suspect]
     Indication: CROHN'S DISEASE
     Route: 048
  3. IMUREL [Concomitant]
     Route: 065
  4. CIPROXIN [Concomitant]

REACTIONS (1)
  - TESTICULAR SEMINOMA (PURE) STAGE II [None]
